FAERS Safety Report 22333327 (Version 1)
Quarter: 2023Q2

REPORT INFORMATION
  Report Type: Spontaneous
  Country: US (occurrence: None)
  Receive Date: 20230516
  Receipt Date: 20230516
  Transmission Date: 20230722
  Serious: Yes (Hospitalization)
  Sender: FDA-Public Use
  Company Number: None

PATIENT
  Age: 40 Year
  Sex: Female
  Weight: 117.93 kg

DRUGS (1)
  1. ATOMOXETINE [Suspect]
     Active Substance: ATOMOXETINE
     Indication: Attention deficit hyperactivity disorder
     Dates: start: 20230406, end: 20230426

REACTIONS (5)
  - Cholelithiasis [None]
  - Gallbladder enlargement [None]
  - White blood cell count increased [None]
  - Tachycardia [None]
  - Liver function test increased [None]

NARRATIVE: CASE EVENT DATE: 20230426
